FAERS Safety Report 8902431 (Version 1)
Quarter: 2012Q4

REPORT INFORMATION
  Report Type: 
  Country: GB (occurrence: GB)
  Receive Date: 20121112
  Receipt Date: 20121112
  Transmission Date: 20130627
  Serious: Yes (Hospitalization, Other)
  Sender: FDA-Public Use
  Company Number: GB-PFIZER INC-2012274247

PATIENT
  Age: 91 Year
  Sex: Female

DRUGS (5)
  1. EXEMESTANE [Suspect]
     Route: 048
     Dates: start: 20121017, end: 20121022
  2. ASPIRIN [Concomitant]
     Dosage: 75 mg, UNK
  3. OMEPRAZOLE [Concomitant]
     Dosage: 20 mg, UNK
  4. RAMIPRIL [Concomitant]
     Dosage: 10 mg, UNK
  5. FUROSEMIDE [Concomitant]
     Dosage: 40 mg, UNK

REACTIONS (10)
  - Renal failure acute [Recovering/Resolving]
  - Diarrhoea [Recovering/Resolving]
  - Vomiting [Recovering/Resolving]
  - Petechiae [Recovering/Resolving]
  - Pruritus generalised [Recovering/Resolving]
  - Skin disorder [Recovering/Resolving]
  - Hypotension [Unknown]
  - Blood urea increased [Unknown]
  - Blood creatine decreased [Unknown]
  - Nausea [Unknown]
